FAERS Safety Report 17264949 (Version 3)
Quarter: 2020Q1

REPORT INFORMATION
  Report Type: Spontaneous
  Country: IT (occurrence: IT)
  Receive Date: 20200113
  Receipt Date: 20200316
  Transmission Date: 20200409
  Serious: Yes (Hospitalization, Other)
  Sender: FDA-Public Use
  Company Number: IT-009507513-2001ITA002363

PATIENT
  Age: 16 Year
  Sex: Male
  Weight: 50 kg

DRUGS (6)
  1. REMIFENTANIL HYDROCHLORIDE. [Concomitant]
     Active Substance: REMIFENTANIL HYDROCHLORIDE
     Indication: MAINTENANCE OF ANAESTHESIA
     Dosage: 0.25-0.125MCG/KG/MIN; ROUTE OF ADMINISTRATION: ^EV^
     Route: 042
     Dates: start: 20190222, end: 20190222
  2. PROPOFOL. [Concomitant]
     Active Substance: PROPOFOL
     Indication: INDUCTION OF ANAESTHESIA
     Dosage: 2 MILLIGRAM/KILOGRAM, TOTAL DAILY DOSE: 120 MG; ROUTE: ^EV^
     Route: 042
     Dates: start: 20190222, end: 20190222
  3. REMIFENTANIL HYDROCHLORIDE. [Concomitant]
     Active Substance: REMIFENTANIL HYDROCHLORIDE
     Indication: GENERAL ANAESTHESIA
  4. ROCURONIUM BROMIDE. [Suspect]
     Active Substance: ROCURONIUM BROMIDE
     Indication: INDUCTION OF ANAESTHESIA
     Dosage: 15 MILLIGRAM, ONE DOSE; ROUTE OF ADMINISTRATION: ^EV^
     Route: 042
     Dates: start: 20190222, end: 20190222
  5. BRIDION [Suspect]
     Active Substance: SUGAMMADEX
     Indication: GENERAL ANAESTHESIA
     Dosage: 100 MILLIGRAM, ONE DOSE; ROUTE OF ADMINISTRATION: ^EV^
     Route: 042
     Dates: start: 20190222, end: 20190222
  6. SEVOFLURANE. [Concomitant]
     Active Substance: SEVOFLURANE
     Indication: MAINTENANCE OF ANAESTHESIA
     Dosage: 2 PERCENT FOR 20 MIN; ROUTE OF ADMINISTRATION: ^EV^
     Route: 042
     Dates: start: 20190222, end: 20190222

REACTIONS (2)
  - Acute respiratory failure [Recovered/Resolved]
  - Pulmonary alveolar haemorrhage [Recovered/Resolved]
